FAERS Safety Report 5477063-8 (Version None)
Quarter: 2007Q4

REPORT INFORMATION
  Report Type: 
  Country: None (occurrence: None)
  Receive Date: 20071002
  Receipt Date: 20071002
  Transmission Date: 20080405
  Serious: Yes (Hospitalization)
  Sender: FDA-Public Use
  Company Number: None

PATIENT
  Age: 56 Year
  Sex: Male

DRUGS (1)
  1. WARFARIN SODIUM [Suspect]
     Indication: ANTICOAGULANT THERAPY
     Dosage: 7.5MG EVERY DAY PO
     Route: 048
     Dates: start: 20061024, end: 20070827

REACTIONS (6)
  - ASTHENIA [None]
  - CARDIAC FAILURE CONGESTIVE [None]
  - CONDITION AGGRAVATED [None]
  - INTERNATIONAL NORMALISED RATIO ABNORMAL [None]
  - POLLAKIURIA [None]
  - TREATMENT NONCOMPLIANCE [None]
